FAERS Safety Report 20659491 (Version 2)
Quarter: 2022Q2

REPORT INFORMATION
  Report Type: Spontaneous
  Country: CA (occurrence: CA)
  Receive Date: 20220331
  Receipt Date: 20220414
  Transmission Date: 20220721
  Serious: Yes (Other)
  Sender: FDA-Public Use
  Company Number: CA-PFIZER INC-202101427185

PATIENT
  Age: 48 Year
  Sex: Female

DRUGS (4)
  1. XELJANZ [Suspect]
     Active Substance: TOFACITINIB CITRATE
     Indication: Colitis ulcerative
     Dosage: 10 MG, 2X/DAY (FOR 6 WEEKS)
     Route: 048
     Dates: start: 20211012
  2. PREDNISONE [Concomitant]
     Active Substance: PREDNISONE
     Dosage: 1 DF, DOSAGE INFORMATION NOT AVAILABLE
     Route: 065
  3. PREDNISONE [Concomitant]
     Active Substance: PREDNISONE
     Dosage: 5 MG, DAILY
     Route: 065
  4. IRON [Concomitant]
     Active Substance: IRON
     Dosage: UNK, THREE IRON IV AND I HAVE ONE MORE TO GO
     Route: 042

REACTIONS (4)
  - Fistula [Unknown]
  - Off label use [Unknown]
  - Stress [Unknown]
  - Depressed mood [Unknown]

NARRATIVE: CASE EVENT DATE: 20211030
